FAERS Safety Report 22599206 (Version 1)
Quarter: 2023Q2

REPORT INFORMATION
  Report Type: Spontaneous
  Country: US (occurrence: None)
  Receive Date: 20230613
  Receipt Date: 20230613
  Transmission Date: 20230721
  Serious: No
  Sender: FDA-Public Use
  Company Number: None

PATIENT
  Age: 48 Year
  Sex: Female
  Weight: 81 kg

DRUGS (4)
  1. BOTOX [Suspect]
     Active Substance: ONABOTULINUMTOXINA
  2. FLUTICASONE [Concomitant]
     Active Substance: FLUTICASONE
  3. ALBUTEROL [Concomitant]
     Active Substance: ALBUTEROL
  4. Depropravera [Concomitant]

REACTIONS (1)
  - Skin indentation [None]

NARRATIVE: CASE EVENT DATE: 20220822
